FAERS Safety Report 16795567 (Version 1)
Quarter: 2019Q3

REPORT INFORMATION
  Report Type: Spontaneous
  Country: US (occurrence: US)
  Receive Date: 20190911
  Receipt Date: 20190911
  Transmission Date: 20191005
  Serious: Yes (Hospitalization)
  Sender: FDA-Public Use
  Company Number: US-AMERICAN REGENT INC-2019001942

PATIENT
  Age: 65 Year
  Sex: Female

DRUGS (5)
  1. RANITIDINE. [Concomitant]
     Active Substance: RANITIDINE
     Indication: ABDOMINAL DISCOMFORT
     Dosage: UNK, QD
     Route: 065
  2. LIDOCAINE. [Concomitant]
     Active Substance: LIDOCAINE
     Indication: ABDOMINAL PAIN UPPER
     Dosage: UNK, 10-15 ML
     Route: 048
  3. MAALOX ANTACID [Concomitant]
     Active Substance: ALUMINUM HYDROXIDE\DIMETHICONE\MAGNESIUM HYDROXIDE
     Indication: ABDOMINAL PAIN UPPER
     Dosage: 10-15 MILLILITER
     Route: 048
  4. ATROPINE SULFATE INJECTION, USP (0101-25) [Suspect]
     Active Substance: ATROPINE SULFATE
     Indication: ABDOMINAL PAIN UPPER
     Dosage: 10-15 ML
     Route: 048
  5. OMEPRAZOLE. [Concomitant]
     Active Substance: OMEPRAZOLE
     Indication: ABDOMINAL DISCOMFORT
     Dosage: UNK, QD
     Route: 065

REACTIONS (9)
  - Mydriasis [Unknown]
  - Confusional state [Unknown]
  - Aggression [Unknown]
  - Product use in unapproved indication [Unknown]
  - Product preparation error [Unknown]
  - Vomiting [Unknown]
  - Hallucination [Unknown]
  - Pupillary reflex impaired [Unknown]
  - Movement disorder [Unknown]
